FAERS Safety Report 5004059-2 (Version None)
Quarter: 2006Q2

REPORT INFORMATION
  Report Type: 
  Country: None (occurrence: None)
  Receive Date: 20060515
  Receipt Date: 20060515
  Transmission Date: 20061013
  Serious: Yes (Life-Threatening, Hospitalization, Other)
  Sender: FDA-Public Use
  Company Number: None

PATIENT
  Age: 33 Year
  Sex: Male
  Weight: 63.5036 kg

DRUGS (1)
  1. GABAPENTIN [Suspect]

REACTIONS (4)
  - DRUG DEPENDENCE [None]
  - MOOD SWINGS [None]
  - PHYSICAL ASSAULT [None]
  - SUICIDE ATTEMPT [None]
